FAERS Safety Report 25962466 (Version 1)
Quarter: 2025Q4

REPORT INFORMATION
  Report Type: Spontaneous
  Country: US (occurrence: None)
  Receive Date: 20251026
  Receipt Date: 20251026
  Transmission Date: 20260118
  Serious: Yes (Disabling)
  Sender: FDA-CTU
  Company Number: None

PATIENT
  Age: 75 Year
  Sex: Female
  Weight: 67.5 kg

DRUGS (6)
  1. PROLIA [Suspect]
     Active Substance: DENOSUMAB
     Indication: Osteoporosis
     Dosage: OTHER STRENGTH : PREFILLED SYRINGE;?OTHER FREQUENCY : EVERY 6 MONTHS;?
     Route: 058
  2. ZOLPIDEM [Concomitant]
     Active Substance: ZOLPIDEM TARTRATE
  3. TYLENOL [Concomitant]
     Active Substance: ACETAMINOPHEN
  4. VITAMINS [Concomitant]
     Active Substance: VITAMINS
  5. VITAMIN C [Concomitant]
     Active Substance: ASCORBIC ACID
  6. VITAMIN D NOS [Concomitant]
     Active Substance: CHOLECALCIFEROL\ERGOCALCIFEROL

REACTIONS (11)
  - Rash [None]
  - Pruritus [None]
  - Pain [None]
  - Joint swelling [None]
  - Pyrexia [None]
  - Chills [None]
  - Chills [None]
  - Gastrointestinal disorder [None]
  - Decreased appetite [None]
  - Constipation [None]
  - Skin discolouration [None]

NARRATIVE: CASE EVENT DATE: 20250623
